FAERS Safety Report 25458971 (Version 1)
Quarter: 2025Q2

REPORT INFORMATION
  Report Type: Report from Study
  Country: US (occurrence: US)
  Receive Date: 20250620
  Receipt Date: 20250620
  Transmission Date: 20250717
  Serious: Yes (Hospitalization, Other)
  Sender: ACADIA PHARMACEUTICALS
  Company Number: US-ACADIA PHARMACEUTICALS INC.-ACA-2025-PIM-007176

PATIENT
  Age: 78 Year
  Sex: Male

DRUGS (11)
  1. NUPLAZID [Suspect]
     Active Substance: PIMAVANSERIN TARTRATE
     Indication: Parkinson^s disease
     Dosage: 34 MILLIGRAM, QD
     Route: 048
     Dates: start: 20250227
  2. LIDO/GAB/CYCLO/HYDRO [Concomitant]
  3. ACETAMINOPHEN [Concomitant]
     Active Substance: ACETAMINOPHEN
  4. MELATONIN [Concomitant]
     Active Substance: MELATONIN
  5. NEXIUM I.V. [Concomitant]
     Active Substance: ESOMEPRAZOLE SODIUM
  6. RYTARY [Concomitant]
     Active Substance: CARBIDOPA\LEVODOPA
  7. ALBUTEROL [Concomitant]
     Active Substance: ALBUTEROL
  8. ATORVASTATIN [Concomitant]
     Active Substance: ATORVASTATIN
  9. GEMTESA [Concomitant]
     Active Substance: VIBEGRON
  10. ESOMEPRAZOLE [Concomitant]
     Active Substance: ESOMEPRAZOLE
  11. MONTELUKAST [Concomitant]
     Active Substance: MONTELUKAST

REACTIONS (4)
  - Diverticulitis [Recovered/Resolved]
  - Parkinson^s disease [Recovered/Resolved]
  - Confusional state [Recovered/Resolved]
  - Gait disturbance [Recovered/Resolved]

NARRATIVE: CASE EVENT DATE: 20250512
